FAERS Safety Report 9603409 (Version 1)
Quarter: 2013Q4

REPORT INFORMATION
  Report Type: Spontaneous
  Country: US (occurrence: US)
  Receive Date: 20131007
  Receipt Date: 20131007
  Transmission Date: 20140711
  Serious: Yes (Other)
  Sender: FDA-Public Use
  Company Number: US-PFIZER INC-2013283295

PATIENT
  Age: 72 Year
  Sex: Male
  Weight: 83.9 kg

DRUGS (2)
  1. VIAGRA [Suspect]
     Indication: PROSTATIC DISORDER
     Dosage: UNK
     Dates: end: 2004
  2. NOVOLOG MIX 70/30 [Concomitant]
     Indication: TYPE 2 DIABETES MELLITUS
     Dosage: 14 IU, 2X/DAY

REACTIONS (3)
  - Hernia [Unknown]
  - Pain [Unknown]
  - Off label use [Unknown]
